FAERS Safety Report 6146010-8 (Version None)
Quarter: 2009Q2

REPORT INFORMATION
  Report Type: 
  Country: None (occurrence: None)
  Receive Date: 20090406
  Receipt Date: 20090406
  Transmission Date: 20091009
  Serious: No
  Sender: FDA-Public Use
  Company Number: None

PATIENT
  Sex: Female
  Weight: 108.8633 kg

DRUGS (2)
  1. CIPRO [Suspect]
     Indication: EAR PAIN
     Dosage: 200 MG 2 X DAY
  2. CIPRO [Suspect]
     Indication: TONSILLITIS
     Dosage: 200 MG 2 X DAY

REACTIONS (3)
  - ABDOMINAL PAIN UPPER [None]
  - HEADACHE [None]
  - OROPHARYNGEAL BLISTERING [None]
